FAERS Safety Report 19105456 (Version 1)
Quarter: 2021Q2

REPORT INFORMATION
  Report Type: Report from Study
  Country: NL (occurrence: NL)
  Receive Date: 20210407
  Receipt Date: 20210407
  Transmission Date: 20210717
  Serious: Yes (Hospitalization)
  Sender: FDA-Public Use
  Company Number: NVSC2021NL074172

PATIENT
  Age: 74 Year
  Sex: Female

DRUGS (4)
  1. DECITABINE. [Suspect]
     Active Substance: DECITABINE
     Indication: MYELODYSPLASTIC SYNDROME
  2. MIDOSTAURIN [Suspect]
     Active Substance: MIDOSTAURIN
     Indication: ACUTE MYELOID LEUKAEMIA
     Dosage: 100 MG
     Route: 048
     Dates: start: 20210305
  3. MIDOSTAURIN [Suspect]
     Active Substance: MIDOSTAURIN
     Indication: MYELODYSPLASTIC SYNDROME
  4. DECITABINE. [Suspect]
     Active Substance: DECITABINE
     Indication: ACUTE MYELOID LEUKAEMIA
     Dosage: 40 MG
     Route: 042
     Dates: start: 20210223

REACTIONS (1)
  - Urinary tract infection [Recovered/Resolved]

NARRATIVE: CASE EVENT DATE: 20210310
